FAERS Safety Report 4610958-3 (Version None)
Quarter: 2005Q1

REPORT INFORMATION
  Report Type: 
  Country: None (occurrence: None)
  Receive Date: 20050317
  Receipt Date: 20050308
  Transmission Date: 20050727
  Serious: Yes (Hospitalization)
  Sender: FDA-Public Use
  Company Number: PHRM2005FR01016

PATIENT
  Age: 53 Year
  Sex: Female
  Weight: 84 kg

DRUGS (5)
  1. TETRAZEPAM [Concomitant]
     Indication: VIRAL INFECTION
     Dosage: 50 MG, QD
     Route: 048
     Dates: start: 20050117, end: 20050122
  2. OMEPRAZOLE [Concomitant]
     Dosage: 20 MG, QD
     Route: 048
     Dates: start: 20050117, end: 20050122
  3. ISOBAR [Concomitant]
     Indication: HYPERTENSION
     Dosage: 1 DF, QD
     Route: 048
     Dates: start: 20050117, end: 20050122
  4. ACETAMINOPHEN W/ PROPOXYPHENE HCL [Concomitant]
     Indication: VIRAL INFECTION
     Dosage: 2 DF, PRN
     Dates: start: 20050117, end: 20050122
  5. VOLTAREN [Suspect]
     Indication: VIRAL INFECTION
     Dosage: 75 MG, BID
     Route: 048
     Dates: start: 20050117, end: 20050122

REACTIONS (11)
  - ASTHENIA [None]
  - BLOOD CREATININE INCREASED [None]
  - C-REACTIVE PROTEIN INCREASED [None]
  - CYTOMEGALOVIRUS ANTIBODY POSITIVE [None]
  - GAMMA-GLUTAMYLTRANSFERASE INCREASED [None]
  - GENERAL PHYSICAL HEALTH DETERIORATION [None]
  - GRANULOCYTOSIS [None]
  - INFLAMMATION [None]
  - LEUKOCYTURIA [None]
  - PROTEINURIA [None]
  - RENAL FAILURE ACUTE [None]
